FAERS Safety Report 10098311 (Version 2)
Quarter: 2014Q2

REPORT INFORMATION
  Report Type: Report from Study
  Country: DE (occurrence: DE)
  Receive Date: 20140423
  Receipt Date: 20140613
  Transmission Date: 20141212
  Serious: Yes (Hospitalization)
  Sender: FDA-Public Use
  Company Number: DE-ROCHE-1385201

PATIENT
  Age: 55 Year
  Sex: Female
  Weight: 72 kg

DRUGS (7)
  1. PEG-INTERFERON ALFA 2A [Suspect]
     Indication: HEPATITIS
     Route: 065
     Dates: start: 20080203
  2. RIBAVIRIN [Suspect]
     Indication: HEPATITIS
     Route: 065
     Dates: start: 20080303
  3. SIROLIMUS [Suspect]
     Indication: PROPHYLAXIS AGAINST TRANSPLANT REJECTION
     Route: 048
     Dates: start: 20071210
  4. SIROLIMUS [Suspect]
     Route: 048
     Dates: start: 20071218
  5. SIROLIMUS [Suspect]
     Route: 048
     Dates: start: 20071219
  6. TACROLIMUS [Suspect]
     Indication: PROPHYLAXIS AGAINST TRANSPLANT REJECTION
     Route: 048
     Dates: start: 20071120
  7. TACROLIMUS [Suspect]
     Route: 048
     Dates: start: 200805

REACTIONS (5)
  - Blood creatinine increased [Recovered/Resolved]
  - Oedema [Recovered/Resolved]
  - Anaemia [Recovered/Resolved]
  - Leukopenia [Not Recovered/Not Resolved]
  - Thrombocytopenia [Not Recovered/Not Resolved]
